FAERS Safety Report 16328211 (Version 1)
Quarter: 2019Q2

REPORT INFORMATION
  Report Type: Spontaneous
  Country: CA (occurrence: CA)
  Receive Date: 20190518
  Receipt Date: 20190518
  Transmission Date: 20190711
  Serious: Yes (Other)
  Sender: FDA-Public Use
  Company Number: CA-AUROBINDO-AUR-APL-2019-026636

PATIENT

DRUGS (2)
  1. DIGOXIN. [Interacting]
     Active Substance: DIGOXIN
     Indication: VENTRICULAR FAILURE
     Dosage: UNK
     Route: 065
  2. CARVEDILOL TABLETS [Suspect]
     Active Substance: CARVEDILOL
     Indication: PRODUCT USED FOR UNKNOWN INDICATION
     Dosage: UNK
     Route: 065

REACTIONS (5)
  - Decreased appetite [Unknown]
  - Drug interaction [Unknown]
  - Drug level increased [Unknown]
  - Toxicity to various agents [Unknown]
  - Vomiting [Unknown]
